FAERS Safety Report 7454828-4 (Version None)
Quarter: 2011Q2

REPORT INFORMATION
  Report Type: 
  Country: None (occurrence: None)
  Receive Date: 20110503
  Receipt Date: 20100712
  Transmission Date: 20111010
  Serious: No
  Sender: FDA-Public Use
  Company Number: US-PFIZER INC-2010087476

PATIENT
  Sex: Female
  Weight: 83.9 kg

DRUGS (5)
  1. DEPO-PROVERA [Suspect]
     Indication: CONTRACEPTION
     Dosage: 150 MG, UNK
     Dates: start: 20100301
  2. ZOLOFT [Concomitant]
     Indication: ANXIETY
  3. LAMICTAL [Concomitant]
     Indication: ANXIETY
  4. ZOLOFT [Concomitant]
     Indication: DEPRESSION
     Dosage: UNK MG, UNK
     Route: 048
  5. LAMICTAL [Concomitant]
     Indication: DEPRESSION
     Dosage: UNK MG, UNK
     Route: 048

REACTIONS (2)
  - ABDOMINAL PAIN UPPER [None]
  - HEADACHE [None]
